FAERS Safety Report 8330171-6 (Version None)
Quarter: 2012Q2

REPORT INFORMATION
  Report Type: 
  Country: None (occurrence: None)
  Receive Date: 20120502
  Receipt Date: 20120425
  Transmission Date: 20120825
  Serious: Yes (Other)
  Sender: FDA-Public Use
  Company Number: SE-PFIZER INC-2012013770

PATIENT
  Age: 50 Year
  Sex: Female
  Weight: 86.2 kg

DRUGS (16)
  1. SOMATROPIN [Suspect]
     Dosage: 0.4 MG, 1X/DAY
     Dates: start: 20110614
  2. SOMATROPIN [Suspect]
     Indication: GROWTH HORMONE DEFICIENCY
     Dosage: 0.1 MG DAILY
     Dates: start: 20101110
  3. SOMATROPIN [Suspect]
     Dosage: 0.3 MG, 1X/DAY
     Dates: start: 20110215
  4. MINIRIN [Concomitant]
     Indication: HYPOTHALAMO-PITUITARY DISORDER
     Dosage: UNK
     Dates: start: 19960603
  5. SOMATROPIN [Suspect]
     Dosage: 0.2 MG, 1X/DAY
     Dates: start: 20110125
  6. FOLIC ACID [Concomitant]
     Indication: VITAMIN B6 DEFICIENCY
     Dosage: UNK
     Dates: start: 20061114
  7. FOLIC ACID [Concomitant]
     Dosage: UNK
     Dates: start: 20070110
  8. SOMATROPIN [Suspect]
     Indication: HYPOPITUITARISM
     Dosage: 0.1 MG DAILY, 7 INJECTIONS/WEEK
     Dates: start: 20000704
  9. BROMOCRIPTINE MESYLATE [Concomitant]
     Dosage: UNK
     Dates: start: 20071019
  10. LEVOTHYROXINE SODIUM [Concomitant]
     Indication: BLOOD THYROID STIMULATING HORMONE DECREASED
     Dosage: UNK
     Route: 048
     Dates: start: 19951128
  11. LEVOTHYROXINE SODIUM [Concomitant]
     Indication: PRIMARY HYPOTHYROIDISM
     Dosage: UNK
     Route: 048
     Dates: start: 20090408
  12. HYDROCORTISONE [Concomitant]
     Indication: SECONDARY ADRENOCORTICAL INSUFFICIENCY
     Dosage: UNK
     Dates: start: 20071015
  13. FERROUS SULFATE TAB [Concomitant]
     Dosage: UNK
     Route: 048
     Dates: start: 20100310
  14. BROMOCRIPTINE MESYLATE [Concomitant]
     Indication: HYPERPROLACTINAEMIA
     Dosage: UNK
     Route: 048
     Dates: start: 20051129
  15. MINIRIN [Concomitant]
     Dosage: UNK
     Route: 048
     Dates: start: 20081219
  16. FERROUS SULFATE TAB [Concomitant]
     Indication: IRON DEFICIENCY
     Dosage: UNK
     Route: 048
     Dates: start: 20061114

REACTIONS (1)
  - PITUITARY TUMOUR BENIGN [None]
